FAERS Safety Report 23864043 (Version 3)
Quarter: 2024Q2

REPORT INFORMATION
  Report Type: Spontaneous
  Country: US (occurrence: None)
  Receive Date: 20240516
  Receipt Date: 20240628
  Transmission Date: 20240716
  Serious: Yes (Death, Hospitalization, Other)
  Sender: FDA-Public Use
  Company Number: 2024A112244

PATIENT
  Age: 26519 Day
  Sex: Male

DRUGS (3)
  1. IMFINZI [Suspect]
     Active Substance: DURVALUMAB
     Indication: Non-small cell lung cancer
     Route: 042
     Dates: start: 20240221
  2. IMFINZI [Suspect]
     Active Substance: DURVALUMAB
     Indication: Non-small cell lung cancer
     Dates: start: 20240306
  3. IMFINZI [Suspect]
     Active Substance: DURVALUMAB
     Indication: Non-small cell lung cancer
     Dates: start: 20240320

REACTIONS (11)
  - Renal failure [Fatal]
  - Immune-mediated nephritis [Unknown]
  - Mental status changes [Unknown]
  - Generalised oedema [Unknown]
  - Dyspnoea [Unknown]
  - Fatigue [Unknown]
  - Ill-defined disorder [Unknown]
  - Decreased appetite [Unknown]
  - Dehydration [Unknown]
  - Hypotension [Unknown]
  - Renal failure [Unknown]

NARRATIVE: CASE EVENT DATE: 20240222
